FAERS Safety Report 7267128-2 (Version None)
Quarter: 2011Q1

REPORT INFORMATION
  Report Type: 
  Country: None (occurrence: None)
  Receive Date: 20110119
  Receipt Date: 20110105
  Transmission Date: 20110831
  Serious: Yes (Other)
  Sender: FDA-Public Use
  Company Number: 2011SP000616

PATIENT
  Sex: Female

DRUGS (1)
  1. AERIUS (DESLORATADINE /01398501/) [Suspect]

REACTIONS (1)
  - BLOOD PRESSURE INCREASED [None]
